FAERS Safety Report 11940642 (Version 2)
Quarter: 2018Q2

REPORT INFORMATION
  Report Type: Report from Study
  Country: US (occurrence: US)
  Receive Date: 20160122
  Receipt Date: 20180622
  Transmission Date: 20180711
  Serious: Yes (Hospitalization)
  Sender: FDA-Public Use
  Company Number: PHHO2016US000853

PATIENT
  Age: 65 Year
  Sex: Female
  Weight: 70.2 kg

DRUGS (8)
  1. AFINITOR [Suspect]
     Active Substance: EVEROLIMUS
     Indication: ENDOMETRIAL CANCER RECURRENT
     Dosage: 5 MG, QD
     Route: 048
     Dates: start: 20150902
  2. WARFARIN [Concomitant]
     Active Substance: WARFARIN
     Indication: DEEP VEIN THROMBOSIS
     Route: 065
  3. PANTOPRAZOLE [Concomitant]
     Active Substance: PANTOPRAZOLE
     Dosage: 40 MG, UNK
     Route: 048
  4. VITAMIN D3 [Concomitant]
     Active Substance: CHOLECALCIFEROL
     Indication: PRODUCT USED FOR UNKNOWN INDICATION
     Dosage: 2000 IU, UNK
     Route: 048
  5. VENTOLIN [Concomitant]
     Active Substance: ALBUTEROL SULFATE
     Indication: PRODUCT USED FOR UNKNOWN INDICATION
     Dosage: 90MCG/INH
     Route: 055
  6. FEMARA [Suspect]
     Active Substance: LETROZOLE
     Indication: ENDOMETRIAL CANCER RECURRENT
     Dosage: 2.5 MG, QD
     Route: 048
  7. COUMADIN [Concomitant]
     Active Substance: WARFARIN SODIUM
     Indication: PRODUCT USED FOR UNKNOWN INDICATION
     Dosage: 7.5 MG, QD
     Route: 048
  8. DULCOLAX NOS [Concomitant]
     Active Substance: BISACODYL OR DOCUSATE SODIUM
     Indication: PRODUCT USED FOR UNKNOWN INDICATION
     Dosage: 10 MG, UNK
     Route: 048

REACTIONS (5)
  - Nausea [Unknown]
  - Abdominal pain [Unknown]
  - Blood creatinine increased [Unknown]
  - Anaemia [Unknown]
  - Vomiting [Unknown]

NARRATIVE: CASE EVENT DATE: 20160112
